FAERS Safety Report 6545080-2 (Version None)
Quarter: 2010Q1

REPORT INFORMATION
  Report Type: 
  Country: None (occurrence: None)
  Receive Date: 20100121
  Receipt Date: 20100111
  Transmission Date: 20100710
  Serious: Yes (Hospitalization, Other)
  Sender: FDA-Public Use
  Company Number: US-ABBOTT-10P-163-0619954-00

PATIENT
  Age: 41 Year
  Sex: Female

DRUGS (1)
  1. HUMIRA [Suspect]
     Indication: PSORIASIS
     Dosage: UNKNOWN
     Dates: start: 20080101

REACTIONS (3)
  - CEREBROVASCULAR ACCIDENT [None]
  - DEMYELINATION [None]
  - SENSORY LOSS [None]
